FAERS Safety Report 18567737 (Version 1)
Quarter: 2020Q4

REPORT INFORMATION
  Report Type: Spontaneous
  Country: US (occurrence: US)
  Receive Date: 20201202
  Receipt Date: 20201202
  Transmission Date: 20210114
  Serious: No
  Sender: FDA-Public Use
  Company Number: NVSC2020US312986

PATIENT
  Sex: Female

DRUGS (1)
  1. ESTRADIOL SANDOZ [Suspect]
     Active Substance: ESTRADIOL
     Indication: PRODUCT USED FOR UNKNOWN INDICATION
     Dosage: 1 DF, Q2W (EACH PATCH ON THE SKIN 2 TIMES WEEKLY)
     Route: 065

REACTIONS (3)
  - Product adhesion issue [Unknown]
  - Rash vesicular [Unknown]
  - Hot flush [Unknown]
